FAERS Safety Report 6147682-4 (Version None)
Quarter: 2009Q2

REPORT INFORMATION
  Report Type: 
  Country: None (occurrence: None)
  Receive Date: 20090408
  Receipt Date: 20090331
  Transmission Date: 20091009
  Serious: Yes (Other)
  Sender: FDA-Public Use
  Company Number: PHHY2009SE12068

PATIENT
  Age: 7 Year
  Sex: Male

DRUGS (2)
  1. RITALIN [Suspect]
     Indication: ATTENTION DEFICIT/HYPERACTIVITY DISORDER
     Dosage: 20 MG, UNK
  2. RITALIN [Suspect]
     Dosage: SOMETIMES 10 MG TABLET IN THE EVENING

REACTIONS (8)
  - ANXIETY [None]
  - BACK PAIN [None]
  - BLOOD URINE PRESENT [None]
  - BODY TEMPERATURE INCREASED [None]
  - DRUG INEFFECTIVE [None]
  - FOOD CRAVING [None]
  - PROTEIN URINE PRESENT [None]
  - PSYCHOMOTOR HYPERACTIVITY [None]
